FAERS Safety Report 12171623 (Version 1)
Quarter: 2016Q1

REPORT INFORMATION
  Report Type: Spontaneous
  Country: US (occurrence: US)
  Receive Date: 20160311
  Receipt Date: 20160311
  Transmission Date: 20160526
  Serious: Yes (Death, Hospitalization)
  Sender: FDA-Public Use
  Company Number: US-UNITED THERAPEUTICS-UNT-2016-003465

PATIENT
  Age: 26 Year
  Sex: Female
  Weight: 89.34 kg

DRUGS (1)
  1. REMODULIN [Suspect]
     Active Substance: TREPROSTINIL
     Indication: PULMONARY HYPERTENSION
     Dosage: 0.010 ?G/KG, CONTINUING
     Route: 041
     Dates: start: 20160211

REACTIONS (2)
  - Influenza like illness [Fatal]
  - Dyspnoea [Fatal]

NARRATIVE: CASE EVENT DATE: 20160301
